FAERS Safety Report 7907881-5 (Version None)
Quarter: 2011Q4

REPORT INFORMATION
  Report Type: 
  Country: None (occurrence: None)
  Receive Date: 20111110
  Receipt Date: 20111102
  Transmission Date: 20120403
  Serious: Yes (Other)
  Sender: FDA-Public Use
  Company Number: US-US-EMD SERONO, INC.-7093692

PATIENT
  Sex: Female

DRUGS (3)
  1. REBIF [Suspect]
     Indication: MULTIPLE SCLEROSIS
     Route: 058
     Dates: end: 20100701
  2. REBIF [Suspect]
     Route: 058
     Dates: start: 20110808
  3. ACETAMINOPHEN [Concomitant]
     Indication: PREMEDICATION

REACTIONS (8)
  - SUDDEN ONSET OF SLEEP [None]
  - DIABETES MELLITUS [None]
  - BLOOD CHOLESTEROL INCREASED [None]
  - MULTIPLE SCLEROSIS RELAPSE [None]
  - BONE DENSITY ABNORMAL [None]
  - SOMNOLENCE [None]
  - MALAISE [None]
  - BACK DISORDER [None]
